FAERS Safety Report 6733834-9 (Version None)
Quarter: 2010Q2

REPORT INFORMATION
  Report Type: 
  Country: None (occurrence: None)
  Receive Date: 20100520
  Receipt Date: 20100511
  Transmission Date: 20101027
  Serious: Yes (Hospitalization, Other)
  Sender: FDA-Public Use
  Company Number: US-ROCHE-526922

PATIENT
  Sex: Female

DRUGS (3)
  1. BONIVA [Suspect]
     Indication: OSTEOPOROSIS
     Dosage: TAKEN ON A WEEKLY BASIS.
     Route: 048
     Dates: start: 20040101
  2. BONIVA [Suspect]
     Dosage: TAKEN ON A MONTHLY BASIS.
     Route: 048
     Dates: end: 20071001
  3. SYNTHROID [Concomitant]

REACTIONS (4)
  - DISCOMFORT [None]
  - HIP FRACTURE [None]
  - PELVIC FRACTURE [None]
  - PHARYNGOESOPHAGEAL DIVERTICULUM [None]
